FAERS Safety Report 6913908-X (Version None)
Quarter: 2010Q3

REPORT INFORMATION
  Report Type: 
  Country: None (occurrence: None)
  Receive Date: 20100809
  Receipt Date: 20100806
  Transmission Date: 20110219
  Serious: Yes (Hospitalization, Other)
  Sender: FDA-Public Use
  Company Number: US-ROXANE LABORATORIES, INC.-2010-RO-00989RO

PATIENT
  Age: 72 Year
  Sex: Male

DRUGS (3)
  1. DIGOXIN [Suspect]
     Indication: ATRIAL FIBRILLATION
  2. ANTICOAGULANT [Suspect]
     Indication: ATRIAL FIBRILLATION
  3. LIPID LOWERING AGENT [Suspect]
     Indication: BLOOD TRIGLYCERIDES INCREASED

REACTIONS (2)
  - BLOOD TRIGLYCERIDES INCREASED [None]
  - CRONKHITE-CANADA SYNDROME [None]
